FAERS Safety Report 20198981 (Version 4)
Quarter: 2022Q1

REPORT INFORMATION
  Report Type: Other
  Country: GB (occurrence: None)
  Receive Date: 20211217
  Receipt Date: 20220321
  Transmission Date: 20220423
  Serious: Yes (Other)
  Sender: FDA-Public Use
  Company Number: GB-ROCHE-2896777

PATIENT
  Age: 18 Year
  Sex: Female

DRUGS (12)
  1. RISDIPLAM [Suspect]
     Active Substance: RISDIPLAM
     Indication: Spinal muscular atrophy
     Route: 048
     Dates: start: 20200801
  2. RISDIPLAM [Suspect]
     Active Substance: RISDIPLAM
     Dosage: 5MG (6.6ML ONCE DAILY)
     Route: 048
     Dates: start: 20210512
  3. MOVICOL [Concomitant]
     Active Substance: POLYETHYLENE GLYCOL 3350\POTASSIUM CHLORIDE\SODIUM BICARBONATE\SODIUM CHLORIDE
     Indication: Constipation
     Dosage: ONE SACHET
  4. DOCUSATE [Concomitant]
     Active Substance: DOCUSATE
     Indication: Constipation
  5. CETIRIZINE [Concomitant]
     Active Substance: CETIRIZINE HYDROCHLORIDE
     Indication: Seasonal allergy
  6. POTASSIUM CHLORIDE [Concomitant]
     Active Substance: POTASSIUM CHLORIDE
     Indication: Hypokalaemia
     Dosage: TWICE A DAY PLUS ADDITIONAL 30 MM WHEN DIARRHOEA
  7. OMEPRAZOLE [Concomitant]
     Active Substance: OMEPRAZOLE
  8. ONDANSETRON [Concomitant]
     Active Substance: ONDANSETRON
     Indication: Nausea
  9. COLOMYCIN [Concomitant]
  10. ALBUTEROL [Concomitant]
     Active Substance: ALBUTEROL
  11. PARACETAMOL AND IBUPROFEN [Concomitant]
     Indication: Pain
  12. BUTYLSCOPOLAMINE BROMIDE [Concomitant]
     Active Substance: BUTYLSCOPOLAMINE BROMIDE
     Indication: Abdominal pain

REACTIONS (2)
  - Expired product administered [Unknown]
  - Lower respiratory tract infection [Recovering/Resolving]

NARRATIVE: CASE EVENT DATE: 20211106
